FAERS Safety Report 18224045 (Version 1)
Quarter: 2020Q3

REPORT INFORMATION
  Report Type: Spontaneous
  Country: IN (occurrence: RS)
  Receive Date: 20200902
  Receipt Date: 20200902
  Transmission Date: 20201103
  Serious: Yes (Life-Threatening, Hospitalization, Other)
  Sender: FDA-Public Use
  Company Number: RS-ELI_LILLY_AND_COMPANY-RS202008010591

PATIENT
  Age: 57 Year
  Sex: Female

DRUGS (1)
  1. OLANZAPINE. [Suspect]
     Active Substance: OLANZAPINE
     Indication: MAJOR DEPRESSION
     Dosage: UNK, UNKNOWN
     Route: 065

REACTIONS (4)
  - Brain oedema [Recovering/Resolving]
  - Hyperglycaemia [Recovering/Resolving]
  - Loss of consciousness [Recovering/Resolving]
  - Epilepsy [Recovering/Resolving]
